FAERS Safety Report 6753027-9 (Version None)
Quarter: 2010Q2

REPORT INFORMATION
  Report Type: 
  Country: None (occurrence: None)
  Receive Date: 20100602
  Receipt Date: 20100602
  Transmission Date: 20101027
  Serious: Yes (Other)
  Sender: FDA-Public Use
  Company Number: None

PATIENT
  Age: 71 Year
  Sex: Male
  Weight: 83.9154 kg

DRUGS (1)
  1. ATENOLOL [Suspect]
     Indication: BLOOD PRESSURE
     Dosage: 12 1/2 MG DAILY ORAL
     Route: 048
     Dates: start: 20091205, end: 20100221

REACTIONS (1)
  - PSORIASIS [None]
